FAERS Safety Report 19076563 (Version 1)
Quarter: 2021Q1

REPORT INFORMATION
  Report Type: Spontaneous
  Country: US (occurrence: US)
  Receive Date: 20210331
  Receipt Date: 20210331
  Transmission Date: 20210420
  Serious: Yes (Hospitalization)
  Sender: FDA-Public Use
  Company Number: US-LEADINGPHARMA-US-2021LEASPO00113

PATIENT
  Age: 65 Year
  Sex: Male

DRUGS (1)
  1. FUROSEMIDE TABLETS USP [Suspect]
     Active Substance: FUROSEMIDE
     Indication: PRODUCT USED FOR UNKNOWN INDICATION
     Route: 065

REACTIONS (4)
  - Vertigo [Unknown]
  - Dizziness [Unknown]
  - Hospitalisation [Unknown]
  - Impaired quality of life [Unknown]
